FAERS Safety Report 9353248 (Version 2)
Quarter: 2013Q4

REPORT INFORMATION
  Report Type: Spontaneous
  Country: US (occurrence: US)
  Receive Date: 20130618
  Receipt Date: 20131025
  Transmission Date: 20140711
  Serious: No
  Sender: FDA-Public Use
  Company Number: US-PFIZER INC-2013178468

PATIENT
  Age: 54 Year
  Sex: Female
  Weight: 66.21 kg

DRUGS (8)
  1. PREMARIN [Suspect]
     Indication: ATROPHIC VULVOVAGINITIS
     Dosage: 0.03 MG, 1X/DAY
     Route: 048
     Dates: start: 1984
  2. PREMARIN [Suspect]
     Indication: HYSTERECTOMY
     Dosage: 0.3 MG, 1X/DAY
  3. MOBIC [Concomitant]
     Indication: ARTHRITIS
     Dosage: UNK
  4. FISH OIL [Concomitant]
     Dosage: UNK
  5. LEVOXYL [Concomitant]
     Indication: THYROID DISORDER
     Dosage: 75 UG, 1X/DAY
  6. FIORICET [Concomitant]
     Indication: HEADACHE
     Dosage: UNK, MONTHLY
  7. PRILOSEC [Concomitant]
     Indication: GASTROOESOPHAGEAL REFLUX DISEASE
     Dosage: UNK
  8. CENTRUM SILVER [Concomitant]
     Indication: VITAMIN SUPPLEMENTATION
     Dosage: UNK

REACTIONS (6)
  - Rosacea [Unknown]
  - Nervousness [Recovered/Resolved]
  - Insomnia [Recovered/Resolved]
  - Dyskinesia [Recovered/Resolved]
  - Hot flush [Unknown]
  - Vitamin D decreased [Unknown]
